FAERS Safety Report 17004525 (Version 2)
Quarter: 2020Q1

REPORT INFORMATION
  Report Type: Spontaneous
  Country: US (occurrence: US)
  Receive Date: 20191107
  Receipt Date: 20200106
  Transmission Date: 20200409
  Serious: No
  Sender: FDA-Public Use
  Company Number: US-PFIZER INC-2019478379

PATIENT
  Age: 76 Year
  Sex: Female
  Weight: 80.73 kg

DRUGS (2)
  1. AROMASIN [Suspect]
     Active Substance: EXEMESTANE
     Dosage: 25 MG, UNK
  2. AROMASIN [Suspect]
     Active Substance: EXEMESTANE
     Dosage: UNK
     Dates: end: 20190707

REACTIONS (1)
  - Hypoacusis [Recovered/Resolved]
